FAERS Safety Report 23821432 (Version 1)
Quarter: 2024Q2

REPORT INFORMATION
  Report Type: Spontaneous
  Country: US (occurrence: None)
  Receive Date: 20240504
  Receipt Date: 20240504
  Transmission Date: 20240715
  Serious: Yes (Disabling)
  Sender: FDA-Public Use
  Company Number: None

PATIENT
  Age: 62 Year
  Sex: Male
  Weight: 77.4 kg

DRUGS (1)
  1. MIRTAZAPINE [Suspect]
     Active Substance: MIRTAZAPINE
     Indication: Depression
     Dosage: OTHER QUANTITY : 2 TABLET(S);?FREQUENCY : AT BEDTIME;?
     Route: 048

REACTIONS (2)
  - Genital hypoaesthesia [None]
  - Anhedonia [None]

NARRATIVE: CASE EVENT DATE: 20200501
